FAERS Safety Report 13438206 (Version 4)
Quarter: 2017Q2

REPORT INFORMATION
  Report Type: Report from Study
  Country: DE (occurrence: DE)
  Receive Date: 20170413
  Receipt Date: 20170606
  Transmission Date: 20170830
  Serious: Yes (Other)
  Sender: FDA-Public Use
  Company Number: DE-SA-2017SA026040

PATIENT
  Age: 53 Year
  Sex: Female
  Weight: 77 kg

DRUGS (6)
  1. ENALAPRIL [Concomitant]
     Active Substance: ENALAPRIL
     Dates: start: 2005
  2. SAR231893 [Suspect]
     Active Substance: DUPILUMAB
     Indication: DERMATITIS ATOPIC
     Route: 058
     Dates: start: 201608, end: 20170126
  3. SAR231893 [Suspect]
     Active Substance: DUPILUMAB
     Indication: DERMATITIS ATOPIC
     Route: 058
     Dates: start: 20160817, end: 20160817
  4. HCT [Concomitant]
     Active Substance: HYDROCHLOROTHIAZIDE
     Dates: start: 2005
  5. METOPROLOL. [Concomitant]
     Active Substance: METOPROLOL
     Dates: start: 2005
  6. IBUPROFEN. [Concomitant]
     Active Substance: IBUPROFEN
     Dates: start: 2014

REACTIONS (1)
  - Transaminases increased [Recovered/Resolved]

NARRATIVE: CASE EVENT DATE: 20170202
